FAERS Safety Report 11971029 (Version 1)
Quarter: 2016Q1

REPORT INFORMATION
  Report Type: Spontaneous
  Country: FR (occurrence: FR)
  Receive Date: 20160128
  Receipt Date: 20160128
  Transmission Date: 20160526
  Serious: Yes (Other)
  Sender: FDA-Public Use
  Company Number: FR-PFIZER INC-2016038157

PATIENT
  Age: 4 Decade
  Sex: Male

DRUGS (1)
  1. LYRICA [Suspect]
     Active Substance: PREGABALIN
     Dosage: 450 MG, DAILY

REACTIONS (3)
  - Drug abuse [Unknown]
  - Drug dependence [Unknown]
  - Prescription form tampering [Unknown]
